FAERS Safety Report 4373608-X (Version None)
Quarter: 2004Q1

REPORT INFORMATION
  Report Type: 
  Country: None (occurrence: None)
  Receive Date: 20040305
  Receipt Date: 20040202
  Transmission Date: 20041129
  Serious: Yes (Other)
  Sender: FDA-Public Use
  Company Number: 2004UW01744

PATIENT
  Age: 53 Year
  Sex: Female
  Weight: 58.9676 kg

DRUGS (5)
  1. CRESTOR [Suspect]
     Indication: BLOOD CHOLESTEROL INCREASED
     Dosage: 10 MG PO
     Route: 048
  2. PAIN MEDICATIONS [Concomitant]
  3. LORTAB [Concomitant]
  4. XANAX [Concomitant]
  5. EFFEXOR [Concomitant]

REACTIONS (1)
  - HYPOGLYCAEMIA [None]
